FAERS Safety Report 5572848-1 (Version None)
Quarter: 2007Q4

REPORT INFORMATION
  Report Type: 
  Country: None (occurrence: None)
  Receive Date: 20071223
  Receipt Date: 20071219
  Transmission Date: 20080405
  Serious: Yes (Hospitalization)
  Sender: FDA-Public Use
  Company Number: PHEH2007US16018

PATIENT
  Sex: Female

DRUGS (1)
  1. CLOZARIL [Suspect]
     Dosage: 700 MG, QD

REACTIONS (2)
  - SUICIDE ATTEMPT [None]
  - TREATMENT NONCOMPLIANCE [None]
